FAERS Safety Report 7355841 (Version 2)
Quarter: 2012Q4

REPORT INFORMATION
  Report Type: 
  Country: US (occurrence: US)
  Receive Date: 20100415
  Receipt Date: 20120925
  Transmission Date: 20130627
  Serious: No
  Sender: FDA-Public Use
  Company Number: US-B.I. PHARMACEUTICALS,INC./RIDGEFIELD-2010-BP-04280BP

PATIENT
  Sex: Female

DRUGS (11)
  1. SPIRIVA HANDIHALER [Suspect]
     Indication: CHRONIC OBSTRUCTIVE PULMONARY DISEASE
     Dosage: 18 mcg
     Route: 055
     Dates: start: 2010, end: 20120911
  2. SPIRIVA HANDIHALER [Suspect]
     Indication: DYSPNOEA
     Route: 048
  3. BENICAR/HCTZ [Concomitant]
     Indication: HYPERTENSION
     Route: 048
  4. CITALOPRAM [Concomitant]
     Indication: SEDATIVE THERAPY
     Dosage: 20 mg
     Route: 048
  5. KLOR-KON [Concomitant]
     Indication: MUSCLE SPASMS
     Dosage: 10 mEq
     Route: 048
  6. CELEBREX [Concomitant]
     Indication: BACK PAIN
     Dosage: 100 mg
     Route: 048
  7. EXTRA STRENGTH PAIN RELIEF [Concomitant]
     Indication: BACK PAIN
     Dosage: 1000 mg
     Route: 048
  8. LATANOPROST DROPS [Concomitant]
     Indication: GLAUCOMA
  9. VITAMIN D [Concomitant]
     Dosage: 2000 U
     Route: 048
  10. VITAMIN B12 [Concomitant]
     Dosage: 1000 U
     Route: 048
  11. VENTOLIN [Concomitant]
     Indication: INHALATION THERAPY
     Route: 055

REACTIONS (3)
  - Incorrect route of drug administration [Unknown]
  - Dry mouth [Not Recovered/Not Resolved]
  - Dysphonia [Not Recovered/Not Resolved]
